FAERS Safety Report 21588329 (Version 3)
Quarter: 2022Q4

REPORT INFORMATION
  Report Type: Report from Study
  Country: EG (occurrence: EG)
  Receive Date: 20221114
  Receipt Date: 20221207
  Transmission Date: 20230113
  Serious: Yes (Hospitalization, Other)
  Sender: FDA-Public Use
  Company Number: EG-BAYER-2022A155357

PATIENT
  Sex: Male

DRUGS (5)
  1. EYLEA [Suspect]
     Active Substance: AFLIBERCEPT
     Indication: Cataract
     Dosage: BOTH EYES, SOLUTION FOR INJECTION
     Route: 031
     Dates: start: 2019
  2. EYLEA [Suspect]
     Active Substance: AFLIBERCEPT
     Indication: Retinal haemorrhage
     Dosage: UNK, SOLUTION FOR INJECTION
     Dates: start: 2021
  3. PROGRAF [Concomitant]
     Active Substance: TACROLIMUS
     Indication: Product used for unknown indication
     Dosage: 3 TABS MORNING + 3 TABS AT NIGHT
     Dates: start: 20220925
  4. CELLCEPT [Concomitant]
     Active Substance: MYCOPHENOLATE MOFETIL
     Indication: Product used for unknown indication
     Dosage: 1 G, BID, 1 GM MORNING + 1GM AT NIGHT
     Dates: start: 20220925
  5. PREDNISOLONE [Concomitant]
     Active Substance: PREDNISOLONE
     Indication: Product used for unknown indication
     Dosage: 1 TAB/DAY
     Dates: start: 20220925

REACTIONS (9)
  - Surgery [Unknown]
  - Retinal vein occlusion [Not Recovered/Not Resolved]
  - Azotaemia [Not Recovered/Not Resolved]
  - Dyspnoea [Unknown]
  - Retinal haemorrhage [Not Recovered/Not Resolved]
  - Retinal artery occlusion [Not Recovered/Not Resolved]
  - Off label use [Unknown]
  - Inappropriate schedule of product administration [Unknown]
  - Weight decreased [Not Recovered/Not Resolved]

NARRATIVE: CASE EVENT DATE: 20190101
